FAERS Safety Report 11421792 (Version 1)
Quarter: 2015Q3

REPORT INFORMATION
  Report Type: Spontaneous
  Country: US (occurrence: US)
  Receive Date: 20150827
  Receipt Date: 20150827
  Transmission Date: 20151125
  Serious: Yes (Hospitalization, Other)
  Sender: FDA-Public Use
  Company Number: US-BRISTOL-MYERS SQUIBB COMPANY-BMS-2015-056705

PATIENT
  Age: 51 Year
  Sex: Female

DRUGS (2)
  1. ARIPIPRAZOLE. [Suspect]
     Active Substance: ARIPIPRAZOLE
     Indication: AFFECTIVE DISORDER
     Dosage: 10 MG, QD
     Route: 065
  2. VARENICLINE [Suspect]
     Active Substance: VARENICLINE
     Indication: EX-TOBACCO USER
     Dosage: 1 MG, QD
     Route: 065

REACTIONS (5)
  - Suicidal ideation [Unknown]
  - Off label use [Unknown]
  - Hypomania [Unknown]
  - Depression [Unknown]
  - Choreoathetosis [Unknown]
